FAERS Safety Report 5794644-2 (Version None)
Quarter: 2008Q2

REPORT INFORMATION
  Report Type: 
  Country: None (occurrence: None)
  Receive Date: 20080627
  Receipt Date: 20080627
  Transmission Date: 20081010
  Serious: Yes (Hospitalization)
  Sender: FDA-Public Use
  Company Number: None

PATIENT
  Sex: Male
  Weight: 105.2345 kg

DRUGS (8)
  1. COUMADIN [Suspect]
     Indication: ATRIAL FIBRILLATION
     Dosage: ALTERNATE 7.5MG WITH 5MG PO DAILY PRIOR TO ADMISSION
     Route: 048
  2. TRANSFUSION [Suspect]
     Indication: INTERNATIONAL NORMALISED RATIO INCREASED
  3. TRANSFUSION [Suspect]
     Indication: PROTHROMBIN TIME PROLONGED
  4. CARTIA XT [Concomitant]
  5. IMDUR [Concomitant]
  6. ATENOLOL [Concomitant]
  7. LISINOPRIL [Concomitant]
  8. FISH OIL [Concomitant]

REACTIONS (12)
  - ASTHENIA [None]
  - BACK DISORDER [None]
  - BLEEDING TIME PROLONGED [None]
  - CHEST DISCOMFORT [None]
  - CHEST PAIN [None]
  - DIZZINESS [None]
  - HYPOTENSION [None]
  - INTERNATIONAL NORMALISED RATIO INCREASED [None]
  - PROTHROMBIN TIME PROLONGED [None]
  - PYREXIA [None]
  - RESPIRATORY FAILURE [None]
  - TRANSFUSION REACTION [None]
